FAERS Safety Report 19762660 (Version 1)
Quarter: 2021Q3

REPORT INFORMATION
  Report Type: Report from Study
  Country: None (occurrence: US)
  Receive Date: 20210827
  Receipt Date: 20210827
  Transmission Date: 20211014
  Serious: Yes (Hospitalization, Other)
  Sender: FDA-Public Use
  Company Number: US-ABBVIE-21K-163-4054615-00

PATIENT
  Age: 37 Year
  Sex: Female

DRUGS (3)
  1. MODERNA COVID?19 VACCINE [Concomitant]
     Active Substance: CX-024414
     Dosage: SECOND DOSE
     Route: 030
     Dates: start: 20210416
  2. SKYRIZI [Suspect]
     Active Substance: RISANKIZUMAB-RZAA
     Indication: PSORIASIS
     Route: 058
  3. MODERNA COVID?19 VACCINE [Concomitant]
     Active Substance: CX-024414
     Indication: COVID-19 IMMUNISATION
     Dosage: FIRST DOSE
     Route: 030
     Dates: start: 20210401

REACTIONS (5)
  - Oxygen therapy [Recovering/Resolving]
  - Antibiotic therapy [Recovering/Resolving]
  - Decreased appetite [Unknown]
  - Hospitalisation [Recovered/Resolved]
  - Endotracheal intubation [Recovering/Resolving]

NARRATIVE: CASE EVENT DATE: 2021
